FAERS Safety Report 9951671 (Version 1)
Quarter: 2014Q1

REPORT INFORMATION
  Report Type: Report from Study
  Country: US (occurrence: US)
  Receive Date: 20140304
  Receipt Date: 20140304
  Transmission Date: 20141002
  Serious: No
  Sender: FDA-Public Use
  Company Number: US-ABBVIE-13P-163-1076090-00

PATIENT
  Sex: Female
  Weight: 70.37 kg

DRUGS (7)
  1. HUMIRA [Suspect]
     Indication: RHEUMATOID ARTHRITIS
     Route: 058
     Dates: start: 201209
  2. FOLIC ACID [Concomitant]
     Indication: RHEUMATOID ARTHRITIS
  3. METHOTREXATE [Concomitant]
     Indication: RHEUMATOID ARTHRITIS
  4. ABILIFY [Concomitant]
     Indication: STRESS
  5. VENLAFAXINE [Concomitant]
     Indication: STRESS
  6. METOPROLOL [Concomitant]
     Indication: CARDIAC PACEMAKER INSERTION
  7. ECOTRIN [Concomitant]
     Indication: PROPHYLAXIS

REACTIONS (1)
  - Cough [Not Recovered/Not Resolved]
